FAERS Safety Report 6433947-5 (Version None)
Quarter: 2009Q4

REPORT INFORMATION
  Report Type: 
  Country: None (occurrence: None)
  Receive Date: 20091110
  Receipt Date: 20091030
  Transmission Date: 20100525
  Serious: Yes (Life-Threatening, Hospitalization)
  Sender: FDA-Public Use
  Company Number: JP-AMGEN-US362837

PATIENT
  Sex: Male

DRUGS (9)
  1. ENBREL [Suspect]
     Indication: RHEUMATOID ARTHRITIS
     Dosage: LYOPHYLIZED, 25 MG X 2/WEEK
     Route: 058
     Dates: start: 20070222, end: 20081219
  2. FAMOTIDINE [Concomitant]
     Route: 048
  3. METALCAPTASE [Concomitant]
     Route: 048
     Dates: end: 20081215
  4. DOXAZOSIN MESILATE [Concomitant]
     Route: 048
     Dates: start: 20081219
  5. BLOPRESS [Concomitant]
     Route: 048
  6. PREDNISOLONE [Concomitant]
     Route: 048
  7. ALLOPURINOL [Concomitant]
     Route: 048
  8. LANSOPRAZOLE [Concomitant]
     Route: 048
  9. NORVASC [Concomitant]
     Route: 048

REACTIONS (4)
  - CHOLECYSTITIS INFECTIVE [None]
  - DIFFUSE LARGE B-CELL LYMPHOMA [None]
  - GLOMERULONEPHRITIS MEMBRANOUS [None]
  - THROMBOCYTOPENIA [None]
